FAERS Safety Report 19001619 (Version 1)
Quarter: 2021Q1

REPORT INFORMATION
  Report Type: Spontaneous
  Country: US (occurrence: US)
  Receive Date: 20210312
  Receipt Date: 20210312
  Transmission Date: 20210420
  Serious: No
  Sender: FDA-Public Use
  Company Number: US-FARMAPROD-202011-1485

PATIENT
  Age: 55 Year
  Sex: Female

DRUGS (3)
  1. URSO [Concomitant]
     Active Substance: URSODIOL
  2. TACROLIMUS. [Concomitant]
     Active Substance: TACROLIMUS
  3. OXERVATE [Suspect]
     Active Substance: CENEGERMIN-BKBJ
     Indication: NEUROTROPHIC KERATOPATHY
     Route: 047
     Dates: start: 20201023

REACTIONS (7)
  - Swelling of eyelid [Unknown]
  - Photophobia [Unknown]
  - Eye pruritus [Unknown]
  - Ocular hyperaemia [Unknown]
  - Lacrimation increased [Unknown]
  - Foreign body sensation in eyes [Unknown]
  - Eye swelling [Unknown]

NARRATIVE: CASE EVENT DATE: 20201105
